FAERS Safety Report 8653371 (Version 2)
Quarter: 2012Q4

REPORT INFORMATION
  Report Type: Report from Study
  Country: DE (occurrence: DE)
  Receive Date: 20120706
  Receipt Date: 20120925
  Transmission Date: 20130627
  Serious: Yes (Death, Life-Threatening, Hospitalization, Disabling)
  Sender: FDA-Public Use
  Company Number: DE-ABBOTT-12P-062-0938562-00

PATIENT
  Age: 36 Year
  Sex: Male

DRUGS (2)
  1. RITONAVIR SOFT GELATIN CAPSULES [Suspect]
     Indication: HIV INFECTION
     Route: 048
     Dates: start: 20120418
  2. REYATAZ [Concomitant]
     Indication: HIV INFECTION
     Dates: start: 20120418

REACTIONS (7)
  - Sepsis [Fatal]
  - T-cell lymphoma [Not Recovered/Not Resolved]
  - Immune reconstitution inflammatory syndrome [Not Recovered/Not Resolved]
  - Atypical mycobacterial infection [Not Recovered/Not Resolved]
  - Hyperbilirubinaemia [Not Recovered/Not Resolved]
  - Atypical pneumonia [Fatal]
  - Multi-organ failure [Fatal]
